FAERS Safety Report 6444991-6 (Version None)
Quarter: 2009Q4

REPORT INFORMATION
  Report Type: 
  Country: None (occurrence: None)
  Receive Date: 20091110
  Receipt Date: 20090925
  Transmission Date: 20100525
  Serious: No
  Sender: FDA-Public Use
  Company Number: 1000009154

PATIENT
  Age: 61 Year
  Sex: Female

DRUGS (1)
  1. SAVELLA [Suspect]
     Indication: FIBROMYALGIA
     Dates: start: 20090831

REACTIONS (2)
  - EYE SWELLING [None]
  - HEADACHE [None]
